FAERS Safety Report 6430813 (Version 4)
Quarter: 2018Q3

REPORT INFORMATION
  Report Type: Spontaneous
  Country: GB (occurrence: GB)
  Receive Date: 20070928
  Receipt Date: 20180706
  Transmission Date: 20181010
  Serious: Yes (Other)
  Sender: FDA-Public Use
  Company Number: GB-PFIZER INC-2007078321

PATIENT
  Age: 51 Year
  Sex: Female

DRUGS (7)
  1. AZITHROMYCIN ANHYDROUS. [Interacting]
     Active Substance: AZITHROMYCIN ANHYDROUS
     Indication: INFECTIVE PULMONARY EXACERBATION OF CYSTIC FIBROSIS
  2. COLOMYCIN /00013203/ [Suspect]
     Active Substance: COLISTIN SULFATE
     Indication: PSEUDOMONAS INFECTION
     Dosage: 2000000 IU, 3X/DAY
     Route: 042
     Dates: start: 200402
  3. TOBI [Concomitant]
     Active Substance: TOBRAMYCIN
     Dosage: UNK
     Route: 045
     Dates: start: 200402
  4. TOBRAMYCIN. [Interacting]
     Active Substance: TOBRAMYCIN
     Indication: PSEUDOMONAS INFECTION
     Dosage: DAILY
     Route: 042
     Dates: start: 200402
  5. AZITHROMYCIN ANHYDROUS. [Suspect]
     Active Substance: AZITHROMYCIN ANHYDROUS
     Indication: PSEUDOMONAS INFECTION
     Dosage: UNK
     Dates: start: 2004
  6. COLOMYCIN /00013203/ [Suspect]
     Active Substance: COLISTIN SULFATE
     Indication: INFECTIVE PULMONARY EXACERBATION OF CYSTIC FIBROSIS
  7. TOBRAMYCIN. [Interacting]
     Active Substance: TOBRAMYCIN
     Indication: INFECTIVE PULMONARY EXACERBATION OF CYSTIC FIBROSIS

REACTIONS (6)
  - Acute kidney injury [Recovering/Resolving]
  - Eosinophilia [Recovering/Resolving]
  - Creatinine renal clearance decreased [Recovering/Resolving]
  - Blood creatinine increased [Recovering/Resolving]
  - Drug level increased [Recovering/Resolving]
  - Drug interaction [Unknown]
